FAERS Safety Report 8112955-2 (Version None)
Quarter: 2012Q1

REPORT INFORMATION
  Report Type: 
  Country: None (occurrence: None)
  Receive Date: 20120203
  Receipt Date: 20120123
  Transmission Date: 20120608
  Serious: Yes (Hospitalization, Disabling, Other)
  Sender: FDA-Public Use
  Company Number: US-MERCK-1107USA03462

PATIENT
  Age: 67 Year
  Sex: Female

DRUGS (8)
  1. DURAPATITE [Concomitant]
     Route: 065
     Dates: start: 20010101
  2. BONIVA [Suspect]
     Indication: OSTEOPOROSIS
     Route: 048
     Dates: start: 20060401, end: 20090101
  3. VITAMIN D (UNSPECIFIED) [Concomitant]
     Route: 065
     Dates: start: 20010101
  4. FOSAMAX [Suspect]
     Indication: OSTEOPOROSIS
     Route: 048
     Dates: start: 20021101, end: 20060401
  5. RECLAST [Suspect]
     Indication: OSTEOPOROSIS
     Dosage: 5MG/100ML
     Route: 065
     Dates: start: 20090305
  6. CALCIUM (UNSPECIFIED) [Concomitant]
     Route: 065
     Dates: start: 20010101
  7. MAGNESIUM (UNSPECIFIED) [Concomitant]
     Route: 065
     Dates: start: 20010101
  8. HORMONES (UNSPECIFIED) [Concomitant]
     Route: 065
     Dates: start: 19950101

REACTIONS (25)
  - BONE DISORDER [None]
  - LOW TURNOVER OSTEOPATHY [None]
  - TONSILLAR DISORDER [None]
  - CATARACT [None]
  - APPENDIX DISORDER [None]
  - SPONDYLOLISTHESIS [None]
  - HYPERTROPHY [None]
  - INTERVERTEBRAL DISC PROTRUSION [None]
  - VERTEBRAL FORAMINAL STENOSIS [None]
  - FALL [None]
  - OSTEOPOROSIS [None]
  - DEPRESSION [None]
  - ANXIETY [None]
  - SPINAL CORD HERNIATION [None]
  - INSOMNIA [None]
  - DEVICE FAILURE [None]
  - FRACTURE NONUNION [None]
  - OSTEOPENIA [None]
  - HYPERKERATOSIS [None]
  - SPINAL OSTEOARTHRITIS [None]
  - FEMUR FRACTURE [None]
  - LUMBAR RADICULOPATHY [None]
  - VASCULAR CALCIFICATION [None]
  - NECK PAIN [None]
  - INTERVERTEBRAL DISC DEGENERATION [None]
